FAERS Safety Report 6196308-2 (Version None)
Quarter: 2009Q2

REPORT INFORMATION
  Report Type: 
  Country: None (occurrence: None)
  Receive Date: 20090520
  Receipt Date: 20090511
  Transmission Date: 20091009
  Serious: Yes (Death, Hospitalization)
  Sender: FDA-Public Use
  Company Number: FR-PFIZER INC-2009211426

PATIENT
  Age: 63 Year

DRUGS (7)
  1. SUTENT [Suspect]
     Indication: THYROID CANCER
     Dosage: 25 MG, 1X/DAY
     Dates: start: 20080610
  2. LYRICA [Concomitant]
     Indication: PAIN
     Dosage: 75 MG, 2X/DAY
  3. DICLOFENAC SODIUM/MISOPROSTOL [Concomitant]
     Indication: INFLAMMATION
     Dosage: 1 DF, 1X/DAY
  4. TRAMADOL [Concomitant]
     Indication: PAIN
     Dosage: 50 MG, 2X/DAY
     Dates: start: 20090320
  5. EDUCTYL [Concomitant]
     Indication: CONSTIPATION
     Dosage: 1 DF, 1X/DAY
  6. PRIMPERAN [Concomitant]
     Indication: VOMITING
     Dosage: UNK
  7. PRIMPERAN [Concomitant]
     Indication: NAUSEA

REACTIONS (1)
  - MYOCARDIAL INFARCTION [None]
